FAERS Safety Report 8846589 (Version 4)
Quarter: 2012Q4

REPORT INFORMATION
  Report Type: 
  Country: FR (occurrence: FR)
  Receive Date: 20121017
  Receipt Date: 20121130
  Transmission Date: 20130627
  Serious: Yes (Hospitalization)
  Sender: FDA-Public Use
  Company Number: FR-B.I. PHARMACEUTICALS,INC./RIDGEFIELD-2012-FF-01450FF

PATIENT
  Age: 76 None
  Sex: Male

DRUGS (9)
  1. PRADAXA [Suspect]
     Indication: ATRIAL FIBRILLATION
     Dosage: 220 mg
     Route: 048
     Dates: start: 20120322, end: 20120913
  2. FUROSEMIDE [Concomitant]
     Dosage: 20 mg
  3. AMLOR [Concomitant]
     Dosage: 5 mg
  4. LIPANTHYL [Concomitant]
     Dosage: 160 mg
     Route: 048
  5. TAMSULOSINE [Concomitant]
     Dosage: 0.4 mg
     Route: 048
     Dates: end: 20120913
  6. KARDEGIC [Concomitant]
  7. ARTANE [Concomitant]
     Dosage: 1 mg
     Route: 048
     Dates: end: 20120913
  8. IPERTEN [Concomitant]
     Dosage: 10 mg
     Route: 048
  9. LASILIX FAIBLE [Concomitant]
     Dosage: 20 mg
     Route: 048

REACTIONS (4)
  - Subdural haematoma [Recovered/Resolved]
  - Headache [Recovered/Resolved]
  - Vomiting [Recovered/Resolved]
  - Fall [Recovered/Resolved]
